FAERS Safety Report 6975673-X (Version None)
Quarter: 2010Q3

REPORT INFORMATION
  Report Type: 
  Country: None (occurrence: None)
  Receive Date: 20100910
  Receipt Date: 20100827
  Transmission Date: 20110219
  Serious: Yes (Other)
  Sender: FDA-Public Use
  Company Number: SG-RANBAXY-2010RR-37978

PATIENT

DRUGS (18)
  1. COTRIM [Suspect]
  2. MALOPRIM [Suspect]
  3. DICLOFENAC [Suspect]
  4. PHENYTOIN [Suspect]
  5. SULFASALAZINE [Suspect]
  6. CIPROFLOXACIN [Suspect]
  7. METRONIDAZOLE [Suspect]
  8. ALLOPURINOL [Suspect]
  9. CARBAMAZEPINE [Suspect]
  10. INDOMETHACIN SODIUM [Suspect]
  11. CHLORPROMAZINE [Suspect]
  12. COLCHICINE [Suspect]
  13. CLOPIDOGREL [Suspect]
  14. OMEPRAZOLE [Suspect]
  15. SIMVASTATIN [Suspect]
  16. METFORMIN [Suspect]
  17. TOLTERODINE [Suspect]
  18. NIFEDIPINE/ATENOLOL [Suspect]

REACTIONS (1)
  - DRUG RASH WITH EOSINOPHILIA AND SYSTEMIC SYMPTOMS [None]
